FAERS Safety Report 7569642-9 (Version None)
Quarter: 2011Q2

REPORT INFORMATION
  Report Type: 
  Country: None (occurrence: None)
  Receive Date: 20110624
  Receipt Date: 20110620
  Transmission Date: 20111010
  Serious: No
  Sender: FDA-Public Use
  Company Number: US-PFIZER INC-2011136215

PATIENT
  Sex: Female
  Weight: 82.54 kg

DRUGS (2)
  1. TOVIAZ [Suspect]
     Indication: BLADDER DISCOMFORT
     Dosage: 8 MG, DAILY
     Route: 048
     Dates: start: 20110301
  2. PENICILLIN NOS [Concomitant]
     Dosage: UNK, 3X/DAY

REACTIONS (1)
  - CONSTIPATION [None]
